FAERS Safety Report 17331822 (Version 1)
Quarter: 2020Q1

REPORT INFORMATION
  Report Type: Spontaneous
  Country: US (occurrence: US)
  Receive Date: 20200128
  Receipt Date: 20200128
  Transmission Date: 20200409
  Serious: No
  Sender: FDA-Public Use
  Company Number: US-B.I. PHARMACEUTICALS,INC./RIDGEFIELD-2020-US-004257

PATIENT
  Age: 54 Year
  Sex: Female

DRUGS (2)
  1. PRADAXA [Suspect]
     Active Substance: DABIGATRAN ETEXILATE MESYLATE
     Indication: THROMBOSIS
     Dosage: ONE CAPSULE DAILY
     Route: 065
     Dates: start: 201901, end: 20200103
  2. LISINOPRIL. [Concomitant]
     Active Substance: LISINOPRIL
     Indication: HYPERTENSION
     Dosage: 10MG ONCE DAILY?CAPLET
     Route: 065

REACTIONS (4)
  - Product dispensing error [Unknown]
  - Contusion [Unknown]
  - Erythema [Unknown]
  - Dizziness [Unknown]

NARRATIVE: CASE EVENT DATE: 201912
